FAERS Safety Report 19116994 (Version 1)
Quarter: 2021Q2

REPORT INFORMATION
  Report Type: Spontaneous
  Country: CN (occurrence: CN)
  Receive Date: 20210409
  Receipt Date: 20210409
  Transmission Date: 20210717
  Serious: Yes (Other)
  Sender: FDA-Public Use
  Company Number: CN-B.I. PHARMACEUTICALS,INC./RIDGEFIELD-2021-BI-095049

PATIENT
  Age: 3 Year
  Sex: Female
  Weight: 13.5 kg

DRUGS (5)
  1. ATROVENT [Suspect]
     Active Substance: IPRATROPIUM BROMIDE
     Indication: PNEUMONIA
     Route: 055
     Dates: start: 20210325, end: 20210329
  2. MUCOSOLVAN [Concomitant]
     Active Substance: AMBROXOL HYDROCHLORIDE
     Indication: PNEUMONIA
     Route: 042
     Dates: start: 20210325, end: 20210329
  3. SODIUM CHLORIDE. [Concomitant]
     Active Substance: SODIUM CHLORIDE
     Indication: VEHICLE SOLUTION USE
     Route: 042
     Dates: start: 20210325, end: 20210329
  4. SALBUTAMOL SULFATE [Suspect]
     Active Substance: ALBUTEROL SULFATE
     Indication: PNEUMONIA
     Route: 055
     Dates: start: 20210325, end: 20210329
  5. BUDESONIDE. [Suspect]
     Active Substance: BUDESONIDE
     Indication: PNEUMONIA
     Route: 055
     Dates: start: 20210325, end: 20210329

REACTIONS (11)
  - Irritability [Recovering/Resolving]
  - Abdominal discomfort [Recovering/Resolving]
  - Flushing [Recovering/Resolving]
  - Tachypnoea [Recovering/Resolving]
  - Dry mouth [Recovering/Resolving]
  - Off label use [Unknown]
  - Speech disorder [Recovering/Resolving]
  - Heart rate increased [Recovering/Resolving]
  - Tremor [Recovering/Resolving]
  - Agitation [Recovering/Resolving]
  - Pupillary reflex impaired [Recovering/Resolving]

NARRATIVE: CASE EVENT DATE: 20210329
